FAERS Safety Report 6107528-7 (Version None)
Quarter: 2009Q1

REPORT INFORMATION
  Report Type: 
  Country: None (occurrence: None)
  Receive Date: 20090309
  Receipt Date: 20090224
  Transmission Date: 20090719
  Serious: Yes (Hospitalization)
  Sender: FDA-Public Use
  Company Number: PHHY2009GB06951

PATIENT
  Age: 80 Year
  Sex: Female

DRUGS (8)
  1. ZOLEDRONIC ACID [Suspect]
     Indication: OSTEOPOROSIS
     Dosage: 5 MG
     Route: 042
     Dates: start: 20090202
  2. AMITRIPTYLINE [Concomitant]
     Dosage: 10 MG
     Route: 048
  3. ESOMEPRAZOLE [Concomitant]
     Dosage: 40 MG
  4. LEVOTHYROXINE SODIUM [Concomitant]
     Dosage: 100 UG
  5. LISINOPRIL [Concomitant]
     Dosage: 2.5 MG
     Route: 048
  6. PREDNISOLONE [Concomitant]
     Dosage: 2.5 MG
  7. RANITIDINE [Concomitant]
     Dosage: 300 MG
     Route: 048
  8. SIMVASTATIN [Concomitant]
     Dosage: 40 MG

REACTIONS (4)
  - DYSPNOEA [None]
  - LETHARGY [None]
  - PYREXIA [None]
  - TACHYCARDIA [None]
